FAERS Safety Report 5134326-3 (Version None)
Quarter: 2006Q4

REPORT INFORMATION
  Report Type: 
  Country: None (occurrence: None)
  Receive Date: 20060831
  Receipt Date: 20060607
  Transmission Date: 20070319
  Serious: No
  Sender: FDA-Public Use
  Company Number: 2006-BP-06438BP

PATIENT
  Age: 80 Year
  Sex: Female

DRUGS (5)
  1. SPIRIVA [Suspect]
     Indication: CHRONIC OBSTRUCTIVE PULMONARY DISEASE
     Dosage: (18 MCG)
  2. ADVAIR (SERETIDE /01420901/) [Suspect]
     Indication: CHRONIC OBSTRUCTIVE PULMONARY DISEASE
     Dosage: (MULTI DOSE POWDER INHALER),IH
  3. OXGEN (OXYGEN) [Concomitant]
  4. FLUTICASONE PROPIONATE [Concomitant]
  5. SALMETEROL XINAFOATE (SALMETEROL XINAFOATE) [Concomitant]

REACTIONS (3)
  - DEVICE INTERACTION [None]
  - HYPOGEUSIA [None]
  - HYPOSMIA [None]
